FAERS Safety Report 8444810-2 (Version None)
Quarter: 2012Q2

REPORT INFORMATION
  Report Type: 
  Country: None (occurrence: None)
  Receive Date: 20120618
  Receipt Date: 20120609
  Transmission Date: 20120825
  Serious: Yes (Hospitalization)
  Sender: FDA-Public Use
  Company Number: JP-AMGEN-JPNSP2012037206

PATIENT
  Age: 80 Year
  Sex: Male

DRUGS (8)
  1. ACETAMINOPHEN [Concomitant]
     Dosage: UNKNOWN
     Route: 065
  2. LOXOPROFEN [Concomitant]
     Dosage: UNKNOWN
     Route: 065
  3. LYRICA [Concomitant]
     Dosage: UNKNOWN
     Route: 065
  4. VITAMIN B12 [Concomitant]
     Dosage: UNKNOWN
     Route: 065
  5. CASODEX [Concomitant]
     Dosage: UNKNOWN
     Route: 065
  6. FERROUS CITRATE [Concomitant]
     Dosage: UNKNOWN
     Route: 065
  7. LANSOPRAZOLE [Concomitant]
     Dosage: UNKNOWN
     Route: 065
  8. RANMARK [Suspect]
     Indication: PROSTATE CANCER
     Dosage: 120 MG, Q4WK
     Route: 058
     Dates: start: 20120509

REACTIONS (2)
  - HYPERKALAEMIA [None]
  - HYPOCALCAEMIA [None]
